FAERS Safety Report 6912891-0 (Version None)
Quarter: 2010Q3

REPORT INFORMATION
  Report Type: 
  Country: None (occurrence: None)
  Receive Date: 20100806
  Receipt Date: 20090305
  Transmission Date: 20110219
  Serious: No
  Sender: FDA-Public Use
  Company Number: US-PFIZER INC-2009181777

PATIENT
  Sex: Female
  Weight: 89.8 kg

DRUGS (11)
  1. DETROL LA [Suspect]
     Indication: URINARY INCONTINENCE
     Dosage: 4 MG, 1X/DAY
     Dates: start: 20090201
  2. VYTORIN [Concomitant]
  3. PROZAC [Concomitant]
     Dosage: 20MG/DAILY
  4. METOPROLOL [Concomitant]
     Indication: HYPERTENSION
     Dosage: 150 MG/DAILY
  5. HYDROCHLOROTHIAZIDE [Concomitant]
     Dosage: 25MG/DAILY
  6. CLONIDINE [Concomitant]
     Indication: HYPERTENSION
     Dosage: 0.2 MG/DAILY
  7. NEURONTIN [Concomitant]
     Dosage: 600 MG, 3X/DAY
  8. METFORMIN [Concomitant]
     Indication: DIABETES MELLITUS
     Dosage: 500 MG, 2X/DAY
  9. TOPICORT [Concomitant]
  10. ATIVAN [Concomitant]
     Dosage: 2 MG, 4X/DAY
  11. TRIOBE [Concomitant]
     Dosage: UNK

REACTIONS (3)
  - DRY MOUTH [None]
  - DYSKINESIA [None]
  - RASH [None]
